FAERS Safety Report 25325092 (Version 1)
Quarter: 2025Q2

REPORT INFORMATION
  Report Type: Spontaneous
  Country: US (occurrence: None)
  Receive Date: 20250516
  Receipt Date: 20250516
  Transmission Date: 20250716
  Serious: Yes (Life-Threatening, Hospitalization)
  Sender: FDA-CTU
  Company Number: None

PATIENT
  Age: 29 Year
  Sex: Female

DRUGS (1)
  1. ZEPBOUND [Suspect]
     Active Substance: TIRZEPATIDE

REACTIONS (5)
  - Blood potassium decreased [None]
  - Dehydration [None]
  - Respiratory distress [None]
  - Respiratory arrest [None]
  - Flushing [None]

NARRATIVE: CASE EVENT DATE: 20250509
